FAERS Safety Report 9656856 (Version 2)
Quarter: 2013Q4

REPORT INFORMATION
  Report Type: Spontaneous
  Country: FR (occurrence: FR)
  Receive Date: 20131030
  Receipt Date: 20131209
  Transmission Date: 20140711
  Serious: Yes (Other)
  Sender: FDA-Public Use
  Company Number: FR-PFIZER INC-2013305914

PATIENT
  Age: 49 Year
  Sex: Female
  Weight: 51 kg

DRUGS (31)
  1. FLUOROURACILE PFIZER [Suspect]
     Indication: COLON CANCER
     Dosage: 2825 MG, 1ST COURSE
     Route: 042
     Dates: start: 20130725
  2. FLUOROURACILE PFIZER [Suspect]
     Dosage: 2825 MG, 2ND COURSE
     Route: 042
     Dates: start: 20130808
  3. FLUOROURACILE PFIZER [Suspect]
     Dosage: 2825 MG, 3RD COURSE
     Route: 042
     Dates: start: 20130822
  4. FLUOROURACILE PFIZER [Suspect]
     Dosage: 2825 MG, 4TH COURSE
     Route: 042
     Dates: start: 20130905
  5. FLUOROURACILE PFIZER [Suspect]
     Dosage: 2825 MG, 5TH COURSE
     Route: 042
     Dates: start: 20130923
  6. FLUOROURACILE PFIZER [Suspect]
     Dosage: 2825 MG, 6TH COURSE
     Route: 042
     Dates: start: 20131007
  7. ELVORINE [Suspect]
     Indication: COLON CANCER
     Dosage: 235 MG, 1ST COURSE
     Route: 042
     Dates: start: 20130725
  8. ELVORINE [Suspect]
     Dosage: 235 MG, 2ND COURSE
     Route: 042
     Dates: start: 20130808
  9. ELVORINE [Suspect]
     Dosage: 235 MG, 3RD COURSE
     Route: 042
     Dates: start: 20130822
  10. ELVORINE [Suspect]
     Dosage: 235 MG, 4TH COURSE
     Route: 042
     Dates: start: 20130905
  11. ELVORINE [Suspect]
     Dosage: 235 MG, 5TH COURSE
     Route: 042
     Dates: start: 20130923
  12. ELVORINE [Suspect]
     Dosage: 235 MG, 6TH COURSE
     Route: 042
     Dates: start: 20131007
  13. METHYLPREDNISOLONE [Suspect]
     Dosage: 80 MG, 1ST COURSE
     Route: 042
     Dates: start: 20130725
  14. METHYLPREDNISOLONE [Suspect]
     Dosage: 80 MG, 2ND COURSE
     Route: 042
     Dates: start: 20130808
  15. METHYLPREDNISOLONE [Suspect]
     Dosage: 80 MG, 3RD COURSE
     Route: 042
     Dates: start: 20130822
  16. METHYLPREDNISOLONE [Suspect]
     Dosage: 80 MG, 4 TH COURSE
     Route: 042
     Dates: start: 20130905
  17. METHYLPREDNISOLONE [Suspect]
     Dosage: 80 MG, 5 TH COURSE
     Route: 042
     Dates: start: 20130923
  18. METHYLPREDNISOLONE [Suspect]
     Dosage: 80 MG, 6TH COURSE
     Route: 042
     Dates: start: 20131007
  19. ONDANSETRON HCL [Suspect]
     Dosage: 8 MG, DAILY
     Route: 042
     Dates: start: 20130725
  20. OXALIPLATIN ACCORD [Suspect]
     Indication: COLON CANCER
     Dosage: 100 MG, 1ST COURSE
     Route: 042
     Dates: start: 20130725
  21. OXALIPLATIN ACCORD [Suspect]
     Dosage: 100 MG, 2ND COURSE
     Route: 042
     Dates: start: 20130808
  22. OXALIPLATIN ACCORD [Suspect]
     Dosage: 100 MG, 3RD COURSE
     Route: 042
     Dates: start: 20130822
  23. OXALIPLATIN ACCORD [Suspect]
     Dosage: 100 MG, 4TH COURSE
     Route: 042
     Dates: start: 20130905
  24. OXALIPLATIN ACCORD [Suspect]
     Dosage: 100 MG, 5TH COURSE
     Route: 042
     Dates: start: 20130923
  25. OXALIPLATIN ACCORD [Suspect]
     Dosage: 100 MG, 6TH COURSE
     Route: 042
     Dates: start: 20131007
  26. EMEND [Suspect]
     Dosage: 125 MG,1ST COURSE
     Route: 048
     Dates: start: 20130725
  27. EMEND [Suspect]
     Dosage: 125 MG, 2ND COURSE
     Route: 048
     Dates: start: 20130808
  28. EMEND [Suspect]
     Dosage: 125 MG, 3RD COURSE
     Route: 048
     Dates: start: 20130822
  29. EMEND [Suspect]
     Dosage: 125 MG, 4TH COURSE
     Route: 048
     Dates: start: 20130905
  30. EMEND [Suspect]
     Dosage: 125 MG, 5TH COURSE
     Route: 048
     Dates: start: 20130923
  31. EMEND [Suspect]
     Dosage: 125 MG, 6TH COURSE
     Route: 048
     Dates: start: 20131007

REACTIONS (2)
  - Hepatocellular injury [Recovering/Resolving]
  - Cholestasis [Recovering/Resolving]
